FAERS Safety Report 23315800 (Version 1)
Quarter: 2023Q4

REPORT INFORMATION
  Report Type: Spontaneous
  Country: US (occurrence: US)
  Receive Date: 20231219
  Receipt Date: 20231219
  Transmission Date: 20240109
  Serious: Yes (Death)
  Sender: FDA-Public Use
  Company Number: US-PERRIGO-23US014485

PATIENT
  Age: 24 Year
  Sex: Female

DRUGS (5)
  1. NAPROXEN SODIUM [Suspect]
     Active Substance: NAPROXEN\NAPROXEN SODIUM
     Indication: Suspected suicide
     Dosage: UNK
     Route: 048
  2. LORATADINE [Suspect]
     Active Substance: LORATADINE
     Indication: Suspected suicide
     Dosage: UNK
     Route: 048
  3. BUPROPION [Suspect]
     Active Substance: BUPROPION
     Indication: Suspected suicide
     Dosage: UNK
     Route: 048
  4. LAMOTRIGINE [Suspect]
     Active Substance: LAMOTRIGINE
     Indication: Suspected suicide
     Dosage: UNK
     Route: 048
  5. ESCITALOPRAM [Suspect]
     Active Substance: ESCITALOPRAM OXALATE
     Indication: Suspected suicide
     Dosage: UNK
     Route: 048

REACTIONS (2)
  - Exposure to toxic agent [Fatal]
  - Completed suicide [Fatal]

NARRATIVE: CASE EVENT DATE: 20220101
